FAERS Safety Report 14296326 (Version 1)
Quarter: 2017Q4

REPORT INFORMATION
  Report Type: Spontaneous
  Country: US (occurrence: US)
  Receive Date: 20171218
  Receipt Date: 20171218
  Transmission Date: 20180321
  Serious: Yes (Death, Hospitalization)
  Sender: FDA-Public Use
  Company Number: US-ROCHE-2038910

PATIENT
  Age: 83 Year
  Sex: Male

DRUGS (10)
  1. ASPIRIN. [Concomitant]
     Active Substance: ASPIRIN
  2. VENTOLIN [Concomitant]
     Active Substance: ALBUTEROL SULFATE
  3. FOLIC ACID. [Concomitant]
     Active Substance: FOLIC ACID
  4. ESBRIET [Suspect]
     Active Substance: PIRFENIDONE
     Indication: IDIOPATHIC PULMONARY FIBROSIS
     Route: 048
     Dates: start: 20151030, end: 20171202
  5. ALBUTEROL. [Concomitant]
     Active Substance: ALBUTEROL
  6. CALTRATE [Concomitant]
     Active Substance: CALCIUM CARBONATE
  7. OMEPRAZOLE. [Concomitant]
     Active Substance: OMEPRAZOLE
  8. FUROSEMIDE. [Concomitant]
     Active Substance: FUROSEMIDE
  9. METOPROLOL. [Concomitant]
     Active Substance: METOPROLOL
  10. ATORVASTIN [Concomitant]
     Active Substance: ATORVASTATIN

REACTIONS (1)
  - Death [Fatal]

NARRATIVE: CASE EVENT DATE: 20171202
